FAERS Safety Report 16408399 (Version 1)
Quarter: 2019Q2

REPORT INFORMATION
  Report Type: Spontaneous
  Country: FR (occurrence: FR)
  Receive Date: 20190610
  Receipt Date: 20190610
  Transmission Date: 20190711
  Serious: Yes (Other)
  Sender: FDA-Public Use
  Company Number: FR-AUROBINDO-AUR-APL-2019-032418

PATIENT

DRUGS (9)
  1. OXYCONTIN [Suspect]
     Active Substance: OXYCODONE HYDROCHLORIDE
     Indication: PRODUCT USED FOR UNKNOWN INDICATION
     Dosage: 150 MILLIGRAM (IN TOTAL)
     Route: 065
     Dates: start: 20190504, end: 20190504
  2. OXYNORM [Suspect]
     Active Substance: OXYCODONE HYDROCHLORIDE
     Indication: PRODUCT USED FOR UNKNOWN INDICATION
     Dosage: 305 MILLIGRAM (IN TOTAL)
     Route: 065
     Dates: start: 20190504, end: 20190504
  3. OXYCONTIN [Suspect]
     Active Substance: OXYCODONE HYDROCHLORIDE
     Dosage: 560 MILLIGRAM (IN TOTAL)
     Route: 065
     Dates: start: 20190504, end: 20190504
  4. MORPHINE [Suspect]
     Active Substance: MORPHINE
     Indication: PRODUCT USED FOR UNKNOWN INDICATION
     Dosage: 60 MILLIGRAM (IN TOTAL)
     Route: 065
     Dates: start: 20190504, end: 20190504
  5. OXYNORM [Suspect]
     Active Substance: OXYCODONE HYDROCHLORIDE
     Indication: PRODUCT USED FOR UNKNOWN INDICATION
     Dosage: 140 MILLIGRAM (IN TOTAL)
     Route: 065
     Dates: start: 20190504, end: 20190504
  6. ACTISKENAN [Suspect]
     Active Substance: MORPHINE SULFATE
     Indication: PRODUCT USED FOR UNKNOWN INDICATION
     Dosage: 270 MILLIGRAM (IN TOTAL)
     Route: 065
     Dates: start: 20190504, end: 20190504
  7. OXYCODONE [Suspect]
     Active Substance: OXYCODONE
     Indication: PRODUCT USED FOR UNKNOWN INDICATION
     Dosage: 225 MILLIGRAM (IN TOTAL)
     Route: 065
     Dates: start: 20190504, end: 20190504
  8. SKENAN [Suspect]
     Active Substance: MORPHINE SULFATE
     Indication: PRODUCT USED FOR UNKNOWN INDICATION
     Dosage: 270 MILLIGRAM (IN TOTAL)
     Route: 065
     Dates: start: 20190504, end: 20190504
  9. OXYNORMORO [Suspect]
     Active Substance: OXYCODONE HYDROCHLORIDE
     Indication: PRODUCT USED FOR UNKNOWN INDICATION
     Dosage: 495 MILLIGRAM (IN TOTAL) (DOSAGE TEXT:99 CP)
     Route: 065
     Dates: start: 20190504, end: 20190504

REACTIONS (2)
  - Theft [Recovered/Resolved]
  - Drug abuse [Not Recovered/Not Resolved]

NARRATIVE: CASE EVENT DATE: 20190504
